FAERS Safety Report 9307945 (Version 1)
Quarter: 2013Q2

REPORT INFORMATION
  Report Type: Report from Study
  Country: IT (occurrence: IT)
  Receive Date: 20130524
  Receipt Date: 20130524
  Transmission Date: 20140414
  Serious: Yes (Death)
  Sender: FDA-Public Use
  Company Number: IT-ASTELLAS-2013EU004462

PATIENT
  Sex: Male

DRUGS (5)
  1. MICAFUNGIN INJECTION [Suspect]
     Dosage: 100 MG, UNKNOWN/D
     Route: 065
     Dates: start: 20120322
  2. MEROPENEM [Concomitant]
     Dosage: UNK
     Route: 065
  3. TEICOPLANIN [Concomitant]
     Dosage: UNK
     Route: 065
  4. KETOROLAC [Concomitant]
     Dosage: UNK
     Route: 065
  5. MORFINE [Concomitant]
     Dosage: UNK
     Route: 065

REACTIONS (1)
  - Laryngeal cancer [Fatal]
